FAERS Safety Report 4819511-X (Version None)
Quarter: 2005Q4

REPORT INFORMATION
  Report Type: 
  Country: None (occurrence: None)
  Receive Date: 20051031
  Receipt Date: 20050616
  Transmission Date: 20060501
  Serious: No
  Sender: FDA-Public Use
  Company Number: 2005PV000055

PATIENT
  Sex: Female

DRUGS (3)
  1. SYMLIN [Suspect]
     Dosage: 120 UG; SC; SEE IMAGE
     Route: 058
     Dates: start: 20050101
  2. SYMLIN [Suspect]
     Dosage: 120 UG; SC; SEE IMAGE
     Route: 058
     Dates: start: 20050101
  3. INSULIN [Concomitant]

REACTIONS (2)
  - BLOOD GLUCOSE FLUCTUATION [None]
  - MEDICATION ERROR [None]
